FAERS Safety Report 6960691-8 (Version None)
Quarter: 2010Q3

REPORT INFORMATION
  Report Type: 
  Country: None (occurrence: None)
  Receive Date: 20100901
  Receipt Date: 20100827
  Transmission Date: 20110219
  Serious: Yes (Other)
  Sender: FDA-Public Use
  Company Number: BR-ROCHE-697984

PATIENT
  Sex: Female
  Weight: 66 kg

DRUGS (25)
  1. CLONAZEPAM [Suspect]
     Indication: SLEEP DISORDER
     Route: 065
  2. CLONAZEPAM [Suspect]
     Route: 065
  3. RITUXIMAB [Suspect]
     Indication: RHEUMATOID ARTHRITIS
     Dosage: FORM: INFUSION. DOSE REPORTED AS 1000 MG/ML
     Route: 042
     Dates: start: 20080801, end: 20080801
  4. RITUXIMAB [Suspect]
     Dosage: DOSE 1000 MG/ML
     Route: 042
     Dates: start: 20090701, end: 20090715
  5. RITUXIMAB [Suspect]
     Dosage: DOSE 1000 MG/ML
     Route: 042
     Dates: start: 20090805, end: 20090820
  6. RITUXIMAB [Suspect]
     Dosage: DOSE: 1000 MG/ML
     Route: 042
     Dates: end: 20100805
  7. CHLOROQUINE PHOSPHATE [Suspect]
     Indication: RHEUMATOID ARTHRITIS
     Route: 065
  8. FOLIC ACID [Concomitant]
     Dosage: 5 TIMES PER ONE WEEK (WED TO SUND)
  9. METHOTREXATE [Concomitant]
     Indication: RHEUMATOID ARTHRITIS
     Dosage: MON TO WED. TECHNOMET
  10. DEFLAZACORT [Concomitant]
  11. ARAVA [Concomitant]
  12. CELEBRA [Concomitant]
  13. TANDRILAX [Concomitant]
  14. TEOLONG [Concomitant]
     Indication: ASTHMA
  15. PREDSIM [Concomitant]
  16. LEUCOGEN [Concomitant]
     Indication: ASTHMA
     Dosage: LEOCOGEN
  17. ENALAPRIL [Concomitant]
     Indication: HYPERTENSION
  18. DILACORON [Concomitant]
     Indication: HYPERTENSION
     Dosage: DILACORON AP
  19. SPIRIVA [Concomitant]
     Indication: ASTHMA
  20. ALENIA [Concomitant]
     Indication: ASTHMA
  21. CEBRILIN [Concomitant]
  22. OMEPRAZOLE [Concomitant]
     Indication: PROPHYLAXIS
  23. LABIRIN [Concomitant]
  24. MARAX [Concomitant]
     Indication: ASTHMA
  25. SINGULAIR [Concomitant]
     Indication: ASTHMA

REACTIONS (20)
  - ARTHRALGIA [None]
  - BLOOD GLUCOSE FLUCTUATION [None]
  - BURNING SENSATION [None]
  - DEPRESSED MOOD [None]
  - DIZZINESS [None]
  - DRUG INEFFECTIVE [None]
  - DUODENAL ULCER [None]
  - EYE DISORDER [None]
  - EYE PAIN [None]
  - GLAUCOMA [None]
  - HEADACHE [None]
  - HIATUS HERNIA [None]
  - HYPERHIDROSIS [None]
  - HYPOGLYCAEMIA [None]
  - JOINT SWELLING [None]
  - OEDEMA PERIPHERAL [None]
  - PAIN [None]
  - PNEUMONIA [None]
  - VISUAL IMPAIRMENT [None]
  - WEIGHT DECREASED [None]
